FAERS Safety Report 11287661 (Version 5)
Quarter: 2020Q1

REPORT INFORMATION
  Report Type: Spontaneous
  Country: US (occurrence: US)
  Receive Date: 20150721
  Receipt Date: 20200203
  Transmission Date: 20200409
  Serious: Yes (Other)
  Sender: FDA-Public Use
  Company Number: US-PFIZER INC-2015240338

PATIENT
  Age: 67 Year
  Sex: Female

DRUGS (24)
  1. FUROSEMIDE. [Concomitant]
     Active Substance: FUROSEMIDE
     Indication: FLUID RETENTION
     Dosage: 40 MG, 2X/DAY
     Route: 048
  2. ISOSORBIDE. [Concomitant]
     Active Substance: ISOSORBIDE
     Dosage: UNK
  3. XELJANZ [Suspect]
     Active Substance: TOFACITINIB CITRATE
     Indication: RHEUMATOID ARTHRITIS
     Dosage: 5 MG, 2X/DAY
     Route: 048
  4. ESTRADIOL. [Concomitant]
     Active Substance: ESTRADIOL
     Indication: HORMONE REPLACEMENT THERAPY
     Dosage: 0.5 MG, DAILY
     Route: 048
  5. LACTULOSE. [Concomitant]
     Active Substance: LACTULOSE
     Indication: CONSTIPATION
     Dosage: 10G (10 GRAM/15 ML) EVERY DAY AS NEEDED
     Route: 048
  6. VITAMIN D3 [Concomitant]
     Active Substance: CHOLECALCIFEROL
     Dosage: 2000 IU, DAILY
     Route: 048
  7. DOXEPIN [Concomitant]
     Active Substance: DOXEPIN
     Indication: INSOMNIA
     Dosage: 25 MG CAPSULE, 1 TO 2 CAPSULES AS NEEDED AT BEDTIME
  8. FOLIC ACID. [Concomitant]
     Active Substance: FOLIC ACID
     Dosage: 1 MG, DAILY
     Route: 048
  9. PRAVASTATIN. [Concomitant]
     Active Substance: PRAVASTATIN
     Dosage: UNK
  10. HYDROXYCHLOROQUINE [Concomitant]
     Active Substance: HYDROXYCHLOROQUINE
     Indication: CARDIAC DISORDER
     Dosage: 200 MG, DAILY
     Route: 048
  11. ISOSORBIDE MONONITRATE ER [Concomitant]
     Active Substance: ISOSORBIDE MONONITRATE
     Dosage: 60 MG, 1X/DAY
     Route: 048
  12. NITROSTAT [Concomitant]
     Active Substance: NITROGLYCERIN
     Indication: CARDIAC DISORDER
     Dosage: 0.4 MG, AS NEEDED
     Route: 060
  13. OXYCODONE [Concomitant]
     Active Substance: OXYCODONE
     Indication: PAIN
     Dosage: 10 MG EVERY 4 HOURS
     Route: 048
  14. PRAVASTATIN. [Concomitant]
     Active Substance: PRAVASTATIN
     Indication: CARDIAC DISORDER
     Dosage: 40 MG, DAILY
     Route: 048
  15. ROPINIROLE. [Concomitant]
     Active Substance: ROPINIROLE
     Dosage: UNK
  16. ROPINIROLE. [Concomitant]
     Active Substance: ROPINIROLE
     Indication: RESTLESS LEGS SYNDROME
     Dosage: 0.5 MG, 4X/DAY
  17. VALACYCLOVIR [Concomitant]
     Active Substance: VALACYCLOVIR HYDROCHLORIDE
     Indication: HERPES VIRUS INFECTION
     Dosage: 500 MG, DAILY
     Route: 048
  18. IBANDRONATE [Concomitant]
     Active Substance: IBANDRONATE SODIUM
     Indication: OSTEOPOROSIS
     Dosage: 150 MG, 1X/DAY
     Route: 048
  19. ASPIRIN. [Concomitant]
     Active Substance: ASPIRIN
     Indication: CARDIAC DISORDER
     Dosage: 81 MG, DAILY
     Route: 048
  20. ALDACTONE [Concomitant]
     Active Substance: SPIRONOLACTONE
     Dosage: UNK
  21. DILTIAZEM. [Concomitant]
     Active Substance: DILTIAZEM
     Dosage: UNK
  22. DILTIAZEM ER [Concomitant]
     Active Substance: DILTIAZEM
     Indication: HYPERTENSION
     Dosage: 240 MG, 2X/DAY
  23. METOPROLOL TARTRATE. [Concomitant]
     Active Substance: METOPROLOL TARTRATE
     Indication: HYPERTENSION
     Dosage: 50 MG, 2X/DAY
     Route: 048
  24. LASIX [Concomitant]
     Active Substance: FUROSEMIDE
     Dosage: UNK

REACTIONS (12)
  - Malaise [Unknown]
  - Mitral valve prolapse [Unknown]
  - Parvovirus infection [Unknown]
  - Angina pectoris [Unknown]
  - Cardiac failure congestive [Unknown]
  - Neuropathy peripheral [Unknown]
  - Fibromyalgia [Unknown]
  - Erythema infectiosum [Unknown]
  - Infrequent bowel movements [Unknown]
  - Fibrocystic breast disease [Unknown]
  - Osteoarthritis [Unknown]
  - Raynaud^s phenomenon [Unknown]
